FAERS Safety Report 15627969 (Version 4)
Quarter: 2019Q4

REPORT INFORMATION
  Report Type: Spontaneous
  Country: US (occurrence: US)
  Receive Date: 20181116
  Receipt Date: 20191213
  Transmission Date: 20200122
  Serious: Yes (Hospitalization, Other)
  Sender: FDA-Public Use
  Company Number: US-PFIZER INC-2017474082

PATIENT
  Age: 71 Year
  Sex: Male
  Weight: 86.17 kg

DRUGS (2)
  1. XALATAN [Suspect]
     Active Substance: LATANOPROST
     Indication: GLAUCOMA
     Dosage: 2 GTT, 1X/DAY (ONE DROP IN EACH EYE DAILY AT BEDTIME)
     Route: 047
     Dates: start: 1994
  2. XALATAN [Suspect]
     Active Substance: LATANOPROST
     Dosage: 2 GTT, 1X/DAY (ONE DROP IN EACH EYE DAILY AT BEDTIME)
     Route: 047
     Dates: start: 1994

REACTIONS (1)
  - Myocardial infarction [Recovered/Resolved]

NARRATIVE: CASE EVENT DATE: 20181102
